FAERS Safety Report 26066349 (Version 1)
Quarter: 2025Q4

REPORT INFORMATION
  Report Type: Spontaneous
  Country: CA (occurrence: CA)
  Receive Date: 20251119
  Receipt Date: 20251119
  Transmission Date: 20260118
  Serious: Yes (Other)
  Sender: PFIZER
  Company Number: CA-PFIZER INC-202500225163

PATIENT
  Age: 31 Year
  Sex: Male
  Weight: 112 kg

DRUGS (3)
  1. IXIFI [Suspect]
     Active Substance: INFLIXIMAB-QBTX
     Indication: Hidradenitis
     Dosage: 10 MG/KG, EVERY 4 WEEK
     Route: 042
     Dates: start: 20250709
  2. IXIFI [Suspect]
     Active Substance: INFLIXIMAB-QBTX
     Dosage: 10 MG/KG, EVERY 4 WEEK
     Route: 042
     Dates: start: 20251016
  3. IXIFI [Suspect]
     Active Substance: INFLIXIMAB-QBTX
     Dosage: 1120 MG, AFTER 4 WEEK (10 MG/KG, EVERY 4 WEEK)
     Route: 042
     Dates: start: 20251113

REACTIONS (1)
  - Tonsillectomy [Recovered/Resolved]

NARRATIVE: CASE EVENT DATE: 20251001
